FAERS Safety Report 17504531 (Version 3)
Quarter: 2021Q4

REPORT INFORMATION
  Report Type: Spontaneous
  Country: US (occurrence: US)
  Receive Date: 20200305
  Receipt Date: 20211109
  Transmission Date: 20220303
  Serious: No
  Sender: FDA-Public Use
  Company Number: US-SA-2020SA055034

PATIENT
  Age: 12 Year
  Sex: Male

DRUGS (15)
  1. DUPIXENT [Suspect]
     Active Substance: DUPILUMAB
     Indication: Dermatitis atopic
     Dosage: 200 MG, QOW
     Route: 058
     Dates: start: 201911
  2. DUPIXENT [Suspect]
     Active Substance: DUPILUMAB
     Dosage: 300 MG, QOW
     Route: 058
     Dates: start: 202004
  3. CLONAZEPAM [Concomitant]
     Active Substance: CLONAZEPAM
  4. CLONIDINE [Concomitant]
     Active Substance: CLONIDINE
  5. CLONIDINE [Concomitant]
     Active Substance: CLONIDINE
  6. QBREXZA [Concomitant]
     Active Substance: GLYCOPYRRONIUM TOSYLATE
  7. QBREXZA [Concomitant]
     Active Substance: GLYCOPYRRONIUM TOSYLATE
  8. TACROLIMUS [Concomitant]
     Active Substance: TACROLIMUS
  9. TRILEPTAL [Concomitant]
     Active Substance: OXCARBAZEPINE
  10. DEXMETHYLPHENIDATE HYDROCHLORIDE [Concomitant]
     Active Substance: DEXMETHYLPHENIDATE HYDROCHLORIDE
  11. TRIAMCINOLONE [Concomitant]
     Active Substance: TRIAMCINOLONE
  12. DEXMETHYLPHENIDATE [Concomitant]
     Active Substance: DEXMETHYLPHENIDATE
  13. FAMOTIDINE [Concomitant]
     Active Substance: FAMOTIDINE
  14. OXCARBAZEPINE [Concomitant]
     Active Substance: OXCARBAZEPINE
  15. HYDROXYZINE [Concomitant]
     Active Substance: HYDROXYZINE HYDROCHLORIDE

REACTIONS (11)
  - Eczema [Not Recovered/Not Resolved]
  - Sleep disorder [Not Recovered/Not Resolved]
  - Pruritus [Not Recovered/Not Resolved]
  - Skin fissures [Not Recovered/Not Resolved]
  - Skin exfoliation [Not Recovered/Not Resolved]
  - Dry skin [Not Recovered/Not Resolved]
  - Dermatitis atopic [Not Recovered/Not Resolved]
  - Therapeutic response shortened [Not Recovered/Not Resolved]
  - Product dose omission issue [Unknown]
  - Therapeutic response decreased [Unknown]
  - Off label use [Unknown]

NARRATIVE: CASE EVENT DATE: 20200201
